FAERS Safety Report 23702504 (Version 3)
Quarter: 2024Q2

REPORT INFORMATION
  Report Type: Spontaneous
  Country: US (occurrence: US)
  Receive Date: 20240403
  Receipt Date: 20240429
  Transmission Date: 20240715
  Serious: No
  Sender: FDA-Public Use
  Company Number: US-SANOFI-01992992

PATIENT
  Age: 60 Year
  Sex: Male

DRUGS (1)
  1. LANTUS SOLOSTAR [Suspect]
     Active Substance: INSULIN GLARGINE
     Indication: Type 1 diabetes mellitus
     Dosage: 18 IU, QD

REACTIONS (3)
  - Blood glucose increased [Not Recovered/Not Resolved]
  - Device issue [Unknown]
  - Product dispensing issue [Unknown]
